FAERS Safety Report 8839949 (Version 1)
Quarter: 2012Q4

REPORT INFORMATION
  Report Type: 
  Country: US (occurrence: US)
  Receive Date: 20121015
  Receipt Date: 20121015
  Transmission Date: 20130627
  Serious: No
  Sender: FDA-Public Use
  Company Number: US-B.I. PHARMACEUTICALS,INC./RIDGEFIELD-2012-BP-23931BP

PATIENT
  Age: 71 None
  Sex: Female
  Weight: 43 kg

DRUGS (6)
  1. SPIRIVA [Suspect]
     Indication: CHRONIC OBSTRUCTIVE PULMONARY DISEASE
     Dosage: 18 mcg
     Route: 055
     Dates: start: 2008
  2. SPIRIVA [Suspect]
     Route: 048
     Dates: start: 20121001, end: 20121001
  3. SERTRALINE [Concomitant]
     Indication: ANXIETY
     Dosage: 100 mg
     Route: 048
     Dates: start: 2004
  4. ADVAIR [Concomitant]
     Indication: CHRONIC OBSTRUCTIVE PULMONARY DISEASE
     Route: 055
     Dates: start: 2009
  5. CALCIUM WITH VITAMIN D [Concomitant]
     Indication: MINERAL SUPPLEMENTATION
     Dosage: 1200 mg
     Route: 048
     Dates: start: 2010
  6. LEVOTHYROXINE [Concomitant]
     Indication: HYPOTHYROIDISM
     Dosage: 150 mcg
     Route: 048
     Dates: start: 2002

REACTIONS (3)
  - Pathological fracture [Recovered/Resolved]
  - Pathological fracture [Recovered/Resolved]
  - Incorrect route of drug administration [Recovered/Resolved]
